FAERS Safety Report 10184968 (Version 1)
Quarter: 2014Q2

REPORT INFORMATION
  Report Type: Spontaneous
  Country: GB (occurrence: None)
  Receive Date: 20140519
  Receipt Date: 20140519
  Transmission Date: 20141212
  Serious: Yes (Other)
  Sender: FDA-Public Use
  Company Number: AUR-APL-2014-05657

PATIENT
  Age: 46 Year
  Sex: Female
  Weight: 117.3 kg

DRUGS (12)
  1. RAMIPRIL (RAMIPRIL) [Suspect]
     Indication: PRODUCT USED FOR UNKNOWN INDICATION
     Dates: start: 20140425
  2. AMITRIPTYLINE HYDROCHLORIDE (AMITRIPTYLINE HYDROCHLORIDE) (TABLET) (AMITRIPTYLINE HYDROCHLORIDE) [Concomitant]
  3. DERMOVATE (CLOBETASOL PROPIONATE) [Concomitant]
  4. IBUPROFEN (IBUPROFEN) [Concomitant]
  5. LACTULOSE (LACTULOSE) [Concomitant]
  6. LANSOPRAZOLE (LANSOPRAZOLE) [Concomitant]
  7. METFORMIN (METFORMIN) [Concomitant]
  8. NAPROXEN (NAPROXEN) [Concomitant]
  9. OILATUM (PARAFFIN, LIQUID) [Concomitant]
  10. PARACETAMOL (PARACETAMOL) [Concomitant]
  11. SENNA (SENNA ALEXANDRINA) [Concomitant]
  12. ZAPAIN (PANADEINE CO) [Concomitant]

REACTIONS (1)
  - Anaphylactic shock [None]
